FAERS Safety Report 22287486 (Version 1)
Quarter: 2023Q2

REPORT INFORMATION
  Report Type: Spontaneous
  Country: US (occurrence: US)
  Receive Date: 20230505
  Receipt Date: 20230505
  Transmission Date: 20230721
  Serious: No
  Sender: FDA-Public Use
  Company Number: US-PADAGIS-2023PAD00625

PATIENT

DRUGS (2)
  1. DEXAMETHASONE\TOBRAMYCIN [Suspect]
     Active Substance: DEXAMETHASONE\TOBRAMYCIN
     Indication: Ocular hyperaemia
     Dosage: UNK (MORE THAN 3 DROPS )
     Route: 065
  2. DEXAMETHASONE\TOBRAMYCIN [Suspect]
     Active Substance: DEXAMETHASONE\TOBRAMYCIN
     Indication: Eye inflammation

REACTIONS (3)
  - Upper-airway cough syndrome [Not Recovered/Not Resolved]
  - Drug ineffective for unapproved indication [Unknown]
  - Product use issue [Unknown]

NARRATIVE: CASE EVENT DATE: 20230424
